FAERS Safety Report 9639520 (Version 2)
Quarter: 2013Q4

REPORT INFORMATION
  Report Type: Spontaneous
  Country: JP (occurrence: JP)
  Receive Date: 20131023
  Receipt Date: 20131108
  Transmission Date: 20140711
  Serious: Yes (Other)
  Sender: FDA-Public Use
  Company Number: JP-AMGEN-JPNSP2013074579

PATIENT
  Age: 60 Year
  Sex: Female

DRUGS (2)
  1. ARANESP [Suspect]
     Indication: NEPHROGENIC ANAEMIA
     Dosage: 60 MUG, 1X/WEEK
     Route: 040
     Dates: start: 201305
  2. FESIN                              /00023550/ [Concomitant]
     Dosage: UNK, 1X/WEEK
     Route: 040
     Dates: start: 20130523

REACTIONS (1)
  - Aplasia pure red cell [Unknown]
